FAERS Safety Report 15706524 (Version 5)
Quarter: 2019Q1

REPORT INFORMATION
  Report Type: Report from Study
  Country: ZA (occurrence: ZA)
  Receive Date: 20181210
  Receipt Date: 20190128
  Transmission Date: 20190417
  Serious: Yes (Life-Threatening)
  Sender: FDA-Public Use
  Company Number: ZA-SAKK-2018SA332374AA

PATIENT
  Age: 69 Year
  Sex: Female

DRUGS (5)
  1. TOUJEO [Suspect]
     Active Substance: INSULIN GLARGINE
     Dosage: 20 U AT AFTER BREAKFATSA ND 15 UNITS AT BEDTIME
     Dates: start: 20181105
  2. NO STUDY DRUG GIVEN [Suspect]
     Active Substance: UNSPECIFIED INGREDIENT
     Dosage: UNK
  3. COXFLAM [Concomitant]
     Active Substance: MELOXICAM
     Dosage: 7.5 MG, QD (AFTER BREAKFAST)
     Dates: start: 20140107
  4. VITAMIN B [Concomitant]
     Active Substance: VITAMIN B
     Dosage: UNK UNK, QD
     Dates: start: 20140107
  5. TEXA [CETIRIZINE HYDROCHLORIDE] [Concomitant]
     Dosage: 10 MG, QD (AFTER SUPPER)
     Dates: start: 20140107

REACTIONS (5)
  - Blood glucose fluctuation [Not Recovered/Not Resolved]
  - Inappropriate schedule of product administration [Unknown]
  - Pain [Not Recovered/Not Resolved]
  - Blood glucose increased [Not Recovered/Not Resolved]
  - Toothache [Not Recovered/Not Resolved]

NARRATIVE: CASE EVENT DATE: 20181201
